FAERS Safety Report 13127648 (Version 3)
Quarter: 2017Q1

REPORT INFORMATION
  Report Type: Spontaneous
  Country: GR (occurrence: GR)
  Receive Date: 20170118
  Receipt Date: 20170206
  Transmission Date: 20170428
  Serious: Yes (Other)
  Sender: FDA-Public Use
  Company Number: GR-MYLANLABS-2017M1002789

PATIENT

DRUGS (2)
  1. CHOLIB [Concomitant]
     Active Substance: FENOFIBRATE\SIMVASTATIN
     Indication: PRODUCT USED FOR UNKNOWN INDICATION
     Dosage: UNK
  2. KLARICID [Suspect]
     Active Substance: CLARITHROMYCIN
     Indication: EPISTAXIS
     Dosage: 500 MG, BID
     Route: 048
     Dates: start: 20170105, end: 20170110

REACTIONS (4)
  - Sensitivity of teeth [Recovered/Resolved]
  - Heart rate increased [Recovered/Resolved]
  - Dry mouth [Recovered/Resolved]
  - Blood pressure increased [Recovered/Resolved]
